FAERS Safety Report 8607322-9 (Version None)
Quarter: 2012Q3

REPORT INFORMATION
  Report Type: 
  Country: None (occurrence: None)
  Receive Date: 20120821
  Receipt Date: 20120813
  Transmission Date: 20120928
  Serious: Yes (Death, Other)
  Sender: FDA-Public Use
  Company Number: BR-AMGEN-BRASP2012003480

PATIENT
  Age: 52 Year
  Sex: Female
  Weight: 87 kg

DRUGS (11)
  1. VITAMIN B12                        /00056201/ [Concomitant]
     Dosage: 500 UG, UNK
  2. VITAMIN D [Concomitant]
     Dosage: 800 IU, UNK
  3. ENBREL [Suspect]
     Indication: RHEUMATOID ARTHRITIS
     Dosage: 50 MG, 1X/WEEKLY
     Route: 058
     Dates: start: 20111001
  4. ENBREL [Suspect]
     Dosage: 25MG , 2X/WEEK
     Route: 058
     Dates: start: 20111001
  5. METHOTREXATE [Concomitant]
     Dosage: UNK
  6. FOLIC ACID [Concomitant]
     Dosage: 5 MG, UNK
  7. DEPURA [Concomitant]
     Dosage: UNK
  8. APLAUSE [Concomitant]
     Dosage: UNK
  9. PYRIDOXINE HCL [Concomitant]
     Dosage: 25 MG, UNK
  10. ARAVA [Concomitant]
     Dosage: UNK
  11. PRELONE [Concomitant]
     Dosage: UNK

REACTIONS (5)
  - SCIATICA [None]
  - ABDOMINAL ABSCESS [None]
  - INJECTION SITE PRURITUS [None]
  - PNEUMONIA [None]
  - DEATH [None]
